FAERS Safety Report 5104538-3 (Version None)
Quarter: 2006Q3

REPORT INFORMATION
  Report Type: 
  Country: None (occurrence: None)
  Receive Date: 20060911
  Receipt Date: 20060828
  Transmission Date: 20061208
  Serious: Yes (Death)
  Sender: FDA-Public Use
  Company Number: GR200608006289

PATIENT
  Sex: Male

DRUGS (4)
  1. ZYPREXA [Suspect]
     Indication: BIPOLAR DISORDER
     Dosage: ORAL
     Route: 048
     Dates: end: 20050101
  2. SULPIRIDE (SULPIRIDE) [Concomitant]
  3. DEPAKENE [Concomitant]
  4. LEXOTANIL /NET/ (BROMAZEPAM) [Concomitant]

REACTIONS (2)
  - ASCITES [None]
  - CARDIAC FAILURE [None]
